FAERS Safety Report 23284076 (Version 1)
Quarter: 2023Q4

REPORT INFORMATION
  Report Type: Spontaneous
  Country: US (occurrence: US)
  Receive Date: 20231211
  Receipt Date: 20231211
  Transmission Date: 20240110
  Serious: No
  Sender: FDA-Public Use
  Company Number: US-BRISTOL-MYERS SQUIBB COMPANY-2023-176800

PATIENT
  Age: 67 Year
  Sex: Male

DRUGS (2)
  1. ELIQUIS [Suspect]
     Active Substance: APIXABAN
     Indication: Deep vein thrombosis
     Route: 048
     Dates: start: 20231201
  2. VITAMINS NOS [Concomitant]
     Active Substance: VITAMINS
     Indication: Product used for unknown indication

REACTIONS (6)
  - Headache [Unknown]
  - Hypersensitivity [Recovered/Resolved]
  - Paraesthesia oral [Recovered/Resolved]
  - Oral pruritus [Unknown]
  - Dizziness [Unknown]
  - Physical product label issue [Unknown]

NARRATIVE: CASE EVENT DATE: 20231201
